FAERS Safety Report 4557171-6 (Version None)
Quarter: 2005Q1

REPORT INFORMATION
  Report Type: 
  Country: None (occurrence: None)
  Receive Date: 20050118
  Receipt Date: 20050106
  Transmission Date: 20050727
  Serious: Yes (Death)
  Sender: FDA-Public Use
  Company Number: 800239

PATIENT
  Age: 70 Year
  Sex: Male
  Weight: 63 kg

DRUGS (7)
  1. EXTRANEAL [Suspect]
     Indication: PERITONEAL DIALYSIS
     Dosage: 2000 ML; QD; INTRAPERITONEAL
     Route: 033
     Dates: start: 20030904, end: 20040425
  2. DIANEAL [Concomitant]
  3. CALCIJM CARBONATE [Concomitant]
  4. FERROUS SULFATE TAB [Concomitant]
  5. ADALAT CC [Concomitant]
  6. BLOPRESS [Concomitant]
  7. CARDENALIN [Concomitant]

REACTIONS (1)
  - CEREBRAL HAEMORRHAGE [None]
